FAERS Safety Report 14968983 (Version 3)
Quarter: 2024Q4

REPORT INFORMATION
  Report Type: Spontaneous
  Country: SI (occurrence: SI)
  Receive Date: 20180604
  Receipt Date: 20241004
  Transmission Date: 20250114
  Serious: Yes (Other)
  Sender: NOVARTIS
  Company Number: PHHY2017SI017009

PATIENT
  Age: 17 Year
  Sex: Male

DRUGS (8)
  1. CYCLOSPORINE [Suspect]
     Active Substance: CYCLOSPORINE
     Indication: Allogenic bone marrow transplantation therapy
     Dosage: UNK
     Route: 065
  2. CYCLOSPORINE [Suspect]
     Active Substance: CYCLOSPORINE
     Indication: Prophylaxis against graft versus host disease
  3. METHOTREXATE [Concomitant]
     Active Substance: METHOTREXATE
     Indication: Allogenic bone marrow transplantation therapy
     Dosage: UNK
     Route: 065
  4. METHOTREXATE [Concomitant]
     Active Substance: METHOTREXATE
     Indication: Prophylaxis against graft versus host disease
  5. MYCOPHENOLATE MOFETIL [Concomitant]
     Active Substance: MYCOPHENOLATE MOFETIL
     Indication: Allogenic bone marrow transplantation therapy
     Dosage: UNK
     Route: 065
  6. MYCOPHENOLATE MOFETIL [Concomitant]
     Active Substance: MYCOPHENOLATE MOFETIL
     Indication: Prophylaxis against graft versus host disease
  7. TACROLIMUS [Concomitant]
     Active Substance: TACROLIMUS
     Indication: Allogenic bone marrow transplantation therapy
     Dosage: UNK
     Route: 065
  8. TACROLIMUS [Concomitant]
     Active Substance: TACROLIMUS
     Indication: Prophylaxis against graft versus host disease

REACTIONS (12)
  - Neurotoxicity [Not Recovered/Not Resolved]
  - Posterior reversible encephalopathy syndrome [Not Recovered/Not Resolved]
  - Parkinsonism [Not Recovered/Not Resolved]
  - Tremor [Unknown]
  - Muscular weakness [Unknown]
  - Reduced facial expression [Unknown]
  - Dysphonia [Unknown]
  - Muscle rigidity [Unknown]
  - Hypokinesia [Unknown]
  - Dystonia [Not Recovered/Not Resolved]
  - Cytotoxic oedema [Unknown]
  - Toxicity to various agents [Not Recovered/Not Resolved]
